FAERS Safety Report 5809737-0 (Version None)
Quarter: 2008Q3

REPORT INFORMATION
  Report Type: 
  Country: None (occurrence: None)
  Receive Date: 20080714
  Receipt Date: 20080714
  Transmission Date: 20090109
  Serious: Yes (Other)
  Sender: FDA-Public Use
  Company Number: None

PATIENT
  Sex: Female
  Weight: 85.2762 kg

DRUGS (1)
  1. RECLAST [Suspect]
     Indication: OSTEOPOROSIS
     Dosage: 5 ML/100ML YEARLY IV BOLUS, OVER 20 MINUTES
     Route: 040

REACTIONS (6)
  - ARTHRALGIA [None]
  - GAIT DISTURBANCE [None]
  - GRIP STRENGTH DECREASED [None]
  - MOVEMENT DISORDER [None]
  - MYALGIA [None]
  - WALKING AID USER [None]
